FAERS Safety Report 8394682-X (Version None)
Quarter: 2012Q2

REPORT INFORMATION
  Report Type: 
  Country: None (occurrence: None)
  Receive Date: 20120525
  Receipt Date: 20120525
  Transmission Date: 20120825
  Serious: Yes (Life-Threatening, Hospitalization)
  Sender: FDA-Public Use
  Company Number: None

PATIENT
  Age: 51 Year
  Sex: Female
  Weight: 85.2762 kg

DRUGS (1)
  1. AZITHROMYCIN [Suspect]
     Indication: PNEUMONIA
     Dosage: 500 MG 1ST DOSE THEN 250 QD DAILY PO
     Route: 048
     Dates: start: 20041127, end: 20041130

REACTIONS (3)
  - VENTRICULAR FIBRILLATION [None]
  - CARDIAC ARREST [None]
  - TORSADE DE POINTES [None]
